FAERS Safety Report 18018496 (Version 1)
Quarter: 2020Q3

REPORT INFORMATION
  Report Type: Spontaneous
  Country: US (occurrence: US)
  Receive Date: 20200713
  Receipt Date: 20200713
  Transmission Date: 20201103
  Serious: No
  Sender: FDA-Public Use
  Company Number: None

PATIENT

DRUGS (1)
  1. ASCORBIC ACID. [Suspect]
     Active Substance: ASCORBIC ACID
     Dosage: ?          OTHER ROUTE:IV, IM OR SQ?

REACTIONS (3)
  - Product label confusion [None]
  - Product preparation issue [None]
  - Product label issue [None]
